FAERS Safety Report 22117090 (Version 2)
Quarter: 2023Q2

REPORT INFORMATION
  Report Type: Spontaneous
  Country: US (occurrence: US)
  Receive Date: 20230320
  Receipt Date: 20230412
  Transmission Date: 20230721
  Serious: Yes (Other)
  Sender: FDA-Public Use
  Company Number: US-PFIZER INC-PV202200124784

PATIENT
  Age: 73 Year
  Sex: Male
  Weight: 80.726 kg

DRUGS (4)
  1. VYNDAMAX [Suspect]
     Active Substance: TAFAMIDIS
     Indication: Amyloidosis
     Dosage: 61 MG (1X)
     Dates: start: 20220708
  2. VYNDAMAX [Suspect]
     Active Substance: TAFAMIDIS
     Indication: Cardiac amyloidosis
  3. DOFETILIDE [Concomitant]
     Active Substance: DOFETILIDE
     Dosage: UNK
     Dates: start: 20220712
  4. ELIQUIS [Concomitant]
     Active Substance: APIXABAN
     Dosage: 5 MG
     Dates: start: 20220623

REACTIONS (2)
  - Cardiac failure [Unknown]
  - Myocardial fibrosis [Unknown]
